FAERS Safety Report 7077625-0 (Version None)
Quarter: 2010Q4

REPORT INFORMATION
  Report Type: 
  Country: None (occurrence: None)
  Receive Date: 20101101
  Receipt Date: 20101025
  Transmission Date: 20110411
  Serious: Yes (Other)
  Sender: FDA-Public Use
  Company Number: US-BAYER-201038775NA

PATIENT

DRUGS (1)
  1. ULTRAVIST 150 [Suspect]

REACTIONS (4)
  - DYSPNOEA [None]
  - ERYTHEMA [None]
  - FLUSHING [None]
  - URTICARIA [None]
